FAERS Safety Report 24201673 (Version 1)
Quarter: 2024Q3

REPORT INFORMATION
  Report Type: Spontaneous
  Country: AT (occurrence: AT)
  Receive Date: 20240812
  Receipt Date: 20240812
  Transmission Date: 20241017
  Serious: Yes (Other)
  Sender: TEVA
  Company Number: None

PATIENT
  Age: 34 Year
  Sex: Female

DRUGS (1)
  1. DOXYCYCLINE [Suspect]
     Active Substance: DOXYCYCLINE\DOXYCYCLINE HYCLATE
     Indication: Product used for unknown indication
     Dosage: DISSOLVABLE TABLETS
     Route: 065
     Dates: start: 20240710

REACTIONS (5)
  - Burning sensation [Unknown]
  - Headache [Unknown]
  - Arthralgia [Unknown]
  - Paraesthesia [Unknown]
  - Feeling hot [Unknown]

NARRATIVE: CASE EVENT DATE: 20240720
